FAERS Safety Report 8611948 (Version 2)
Quarter: 2013Q2

REPORT INFORMATION
  Report Type: Spontaneous
  Country: IT (occurrence: IT)
  Receive Date: 20120613
  Receipt Date: 20130509
  Transmission Date: 20140414
  Serious: Yes (Other)
  Sender: FDA-Public Use
  Company Number: IT-BRISTOL-MYERS SQUIBB COMPANY-16677197

PATIENT
  Age: 76 Year
  Sex: Female

DRUGS (5)
  1. ERBITUX SOLN FOR INF [Suspect]
     Indication: ADENOCARCINOMA OF COLON
     Dosage: DOSE REDUCED BY 75%
     Route: 042
     Dates: start: 20110228
  2. FLUOROURACIL [Suspect]
     Indication: ADENOCARCINOMA OF COLON
     Route: 042
     Dates: start: 20110329
  3. LEXOTAN [Concomitant]
  4. BARACLUDE [Concomitant]
  5. FOLIC ACID [Concomitant]

REACTIONS (1)
  - Dysphagia [Recovered/Resolved]
